FAERS Safety Report 12824224 (Version 3)
Quarter: 2017Q3

REPORT INFORMATION
  Report Type: Spontaneous
  Country: JP (occurrence: JP)
  Receive Date: 20161007
  Receipt Date: 20170901
  Transmission Date: 20171127
  Serious: Yes (Hospitalization, Other)
  Sender: FDA-Public Use
  Company Number: JP-GLAXOSMITHKLINE-JP2016JPN145490

PATIENT
  Age: 5 Decade
  Sex: Male

DRUGS (1)
  1. ZAGALLO [Suspect]
     Active Substance: DUTASTERIDE
     Dosage: UNK
     Route: 048
     Dates: start: 201608, end: 201609

REACTIONS (6)
  - Hypoxia [Recovered/Resolved]
  - Interstitial lung disease [Recovering/Resolving]
  - Dyspnoea exertional [Recovering/Resolving]
  - Eosinophilic pneumonia chronic [Recovering/Resolving]
  - Hypoventilation [Recovered/Resolved]
  - Eosinophil count increased [Unknown]

NARRATIVE: CASE EVENT DATE: 201608
